FAERS Safety Report 16775327 (Version 1)
Quarter: 2019Q3

REPORT INFORMATION
  Report Type: Report from Study
  Country: BR (occurrence: BR)
  Receive Date: 20190905
  Receipt Date: 20190905
  Transmission Date: 20191005
  Serious: Yes (Hospitalization)
  Sender: FDA-Public Use
  Company Number: PHHY2019BR204397

PATIENT
  Age: 57 Year
  Sex: Female
  Weight: 89 kg

DRUGS (1)
  1. SANDOSTATIN LAR DEPOT [Suspect]
     Active Substance: OCTREOTIDE ACETATE
     Indication: ACROMEGALY
     Dosage: 40 MG, UNK
     Route: 030
     Dates: start: 20110101

REACTIONS (1)
  - Haemorrhagic stroke [Unknown]

NARRATIVE: CASE EVENT DATE: 20190805
